FAERS Safety Report 21163893 (Version 1)
Quarter: 2022Q3

REPORT INFORMATION
  Report Type: Spontaneous
  Country: US (occurrence: US)
  Receive Date: 20220803
  Receipt Date: 20220803
  Transmission Date: 20221027
  Serious: No
  Sender: FDA-Public Use
  Company Number: US-BRISTOL-MYERS SQUIBB COMPANY-2022-083421

PATIENT
  Age: 77 Year
  Sex: Female

DRUGS (1)
  1. ELIQUIS [Suspect]
     Active Substance: APIXABAN
     Indication: Thrombosis prophylaxis
     Dosage: DOSE : UNAVAILABLE (NOT PROVIDED);     FREQ : UNAVAILABLE (NOT PROVIDED)
     Route: 048

REACTIONS (4)
  - Product packaging quantity issue [Unknown]
  - Product physical issue [Unknown]
  - Intentional product use issue [Unknown]
  - Visual impairment [Unknown]
